FAERS Safety Report 13240445 (Version 1)
Quarter: 2017Q1

REPORT INFORMATION
  Report Type: Spontaneous
  Country: US (occurrence: US)
  Receive Date: 20170216
  Receipt Date: 20170216
  Transmission Date: 20170428
  Serious: No
  Sender: FDA-Public Use
  Company Number: US-RELYPSA-RLY2016003576

PATIENT
  Age: 61 Year
  Sex: Female

DRUGS (9)
  1. SODIUM BICARBONATE. [Concomitant]
     Active Substance: SODIUM BICARBONATE
  2. CALCITRIOL. [Concomitant]
     Active Substance: CALCITRIOL
  3. LEVOTHYROXINE. [Concomitant]
     Active Substance: LEVOTHYROXINE
  4. VELTASSA [Suspect]
     Active Substance: PATIROMER
     Indication: PRODUCT USED FOR UNKNOWN INDICATION
     Dosage: 8.4 G, UNKNOWN
     Route: 065
     Dates: start: 20160421, end: 201608
  5. VELTASSA [Suspect]
     Active Substance: PATIROMER
     Dosage: 8.4 G, QOD
     Route: 065
     Dates: start: 201608
  6. LISINOPRIL. [Concomitant]
     Active Substance: LISINOPRIL
  7. SIMVASTATIN. [Concomitant]
     Active Substance: SIMVASTATIN
  8. METOPROLOL. [Concomitant]
     Active Substance: METOPROLOL
  9. AMLODIPINE [Concomitant]
     Active Substance: AMLODIPINE BESYLATE

REACTIONS (4)
  - Diarrhoea [Recovered/Resolved]
  - Constipation [Recovered/Resolved]
  - Inappropriate schedule of drug administration [Not Recovered/Not Resolved]
  - Flatulence [Recovered/Resolved]

NARRATIVE: CASE EVENT DATE: 201608
